FAERS Safety Report 9636935 (Version 1)
Quarter: 2013Q4

REPORT INFORMATION
  Report Type: Spontaneous
  Country: US (occurrence: US)
  Receive Date: 20131022
  Receipt Date: 20131022
  Transmission Date: 20140711
  Serious: No
  Sender: FDA-Public Use
  Company Number: US-009507513-1310USA008882

PATIENT
  Sex: Male

DRUGS (7)
  1. ZETIA [Suspect]
     Dosage: UNK
     Route: 048
     Dates: end: 2013
  2. ATORVASTATIN [Concomitant]
     Dosage: UNK
  3. COREG [Concomitant]
     Dosage: UNK
  4. MICARDIS HCT [Concomitant]
     Dosage: 80/20
  5. TAMSULOSIN HYDROCHLORIDE [Concomitant]
     Dosage: UNK
  6. KLONOPIN [Concomitant]
     Dosage: UNK
  7. AMBIEN CR [Concomitant]
     Dosage: UNK

REACTIONS (1)
  - Skin odour abnormal [Not Recovered/Not Resolved]
